FAERS Safety Report 5656247-X (Version None)
Quarter: 2008Q1

REPORT INFORMATION
  Report Type: 
  Country: None (occurrence: None)
  Receive Date: 20080305
  Receipt Date: 20080221
  Transmission Date: 20080703
  Serious: Yes (Life-Threatening)
  Sender: FDA-Public Use
  Company Number: 2008AL001209

PATIENT
  Sex: Female

DRUGS (3)
  1. FEVERALL [Suspect]
     Indication: ANALGESIA
     Dosage: 1 G; TID; PO
     Route: 048
  2. FLUCLOXACILLIN [Concomitant]
  3. ACYCLOVIR [Concomitant]

REACTIONS (1)
  - ACUTE HEPATIC FAILURE [None]
